FAERS Safety Report 9663678 (Version 1)
Quarter: 2013Q4

REPORT INFORMATION
  Report Type: Spontaneous
  Country: US (occurrence: None)
  Receive Date: 20131030
  Receipt Date: 20131030
  Transmission Date: 20140711
  Serious: Yes (Hospitalization, Disabling)
  Sender: FDA-Public Use
  Company Number: None

PATIENT
  Age: 29 Year
  Sex: Female
  Weight: 54.89 kg

DRUGS (1)
  1. CIPRO [Suspect]
     Indication: URINARY TRACT INFECTION
     Dosage: TAKEN BY MOUTH
     Dates: start: 20130614

REACTIONS (11)
  - Paraesthesia [None]
  - Paraesthesia [None]
  - Hypoaesthesia [None]
  - Anxiety [None]
  - Visual impairment [None]
  - Pain [None]
  - Weight decreased [None]
  - Skin disorder [None]
  - Activities of daily living impaired [None]
  - Arthralgia [None]
  - Asthenia [None]
